FAERS Safety Report 9467533 (Version 1)
Quarter: 2013Q3

REPORT INFORMATION
  Report Type: Spontaneous
  Country: US (occurrence: None)
  Receive Date: 20130819
  Receipt Date: 20130819
  Transmission Date: 20140515
  Serious: Yes (Hospitalization)
  Sender: FDA-Public Use
  Company Number: None

PATIENT
  Age: 17 Year
  Sex: Female
  Weight: 32 kg

DRUGS (3)
  1. ESCITALOPRAM [Suspect]
     Indication: DEPRESSION
  2. PIPERACILLIN/TAZOBACTAM [Concomitant]
  3. IBUPROFEN [Concomitant]

REACTIONS (3)
  - Sepsis [None]
  - Haemoglobin decreased [None]
  - Haematocrit decreased [None]
